FAERS Safety Report 13084754 (Version 1)
Quarter: 2017Q1

REPORT INFORMATION
  Report Type: Report from Study
  Country: DE (occurrence: DE)
  Receive Date: 20170104
  Receipt Date: 20170104
  Transmission Date: 20170428
  Serious: Yes (Other)
  Sender: FDA-Public Use
  Company Number: DE-SA-2017SA000237

PATIENT
  Age: 64 Year

DRUGS (1)
  1. ALEMTUZUMAB [Suspect]
     Active Substance: ALEMTUZUMAB
     Indication: CHRONIC LYMPHOCYTIC LEUKAEMIA
     Dosage: 10 MG S.C. 8 CYCLES. ONE WEEK/CYCLE; CUMULATIVE DOSE: 83 MG
     Route: 058

REACTIONS (1)
  - Stomatitis [Unknown]
